FAERS Safety Report 9576771 (Version 1)
Quarter: 2013Q4

REPORT INFORMATION
  Report Type: Spontaneous
  Country: US (occurrence: US)
  Receive Date: 20131001
  Receipt Date: 20131001
  Transmission Date: 20140711
  Serious: No
  Sender: FDA-Public Use
  Company Number: US-AMGEN-USASP2013004208

PATIENT
  Age: 49 Year
  Sex: Female

DRUGS (3)
  1. ENBREL [Suspect]
     Indication: PSORIASIS
     Dosage: 50 MG, QWK
     Dates: start: 20070208, end: 2009
  2. METHOTREXATE [Concomitant]
     Dosage: 20 MG (8 TABS, 2.5 MG EACH), QWK, PRN
     Dates: start: 2009
  3. HUMIRA [Concomitant]
     Dosage: UNK

REACTIONS (1)
  - Skin plaque [Not Recovered/Not Resolved]
